FAERS Safety Report 6675319-4 (Version None)
Quarter: 2010Q2

REPORT INFORMATION
  Report Type: 
  Country: None (occurrence: None)
  Receive Date: 20100409
  Receipt Date: 20100204
  Transmission Date: 20101027
  Serious: No
  Sender: FDA-Public Use
  Company Number: A0843010A

PATIENT
  Age: 40 Year
  Sex: Female

DRUGS (6)
  1. TYKERB [Suspect]
     Dosage: 4TAB IN THE MORNING
     Route: 048
     Dates: start: 20100126
  2. KEPPRA [Concomitant]
  3. LEVOTHYROXINE SODIUM [Concomitant]
  4. LANTUS [Concomitant]
  5. SLOW FE [Concomitant]
  6. DEXAMETHASONE [Concomitant]

REACTIONS (2)
  - FATIGUE [None]
  - SENSATION OF HEAVINESS [None]
